FAERS Safety Report 13393813 (Version 8)
Quarter: 2018Q3

REPORT INFORMATION
  Report Type: Report from Study
  Country: AT (occurrence: AT)
  Receive Date: 20170331
  Receipt Date: 20180925
  Transmission Date: 20181010
  Serious: Yes (Hospitalization, Other)
  Sender: FDA-Public Use
  Company Number: PHHY2016AT162281

PATIENT
  Age: 59 Year
  Sex: Female
  Weight: 75 kg

DRUGS (6)
  1. DABRAFENIB [Suspect]
     Active Substance: DABRAFENIB
     Indication: MALIGNANT MELANOMA
     Dosage: 75 MG, UNK (2?0?2)
     Route: 048
  2. MEKINIST [Suspect]
     Active Substance: TRAMETINIB DIMETHYL SULFOXIDE
     Dosage: 2 MG, QD (0?0?1)
     Route: 048
     Dates: start: 20161107, end: 20180314
  3. DABRAFENIB [Suspect]
     Active Substance: DABRAFENIB
     Dosage: 200 MG, UNK
     Route: 048
  4. MEKINIST [Suspect]
     Active Substance: TRAMETINIB DIMETHYL SULFOXIDE
     Indication: MALIGNANT MELANOMA
     Dosage: 2 MG, QD (0?0?1)
     Route: 048
  5. MEKINIST [Suspect]
     Active Substance: TRAMETINIB DIMETHYL SULFOXIDE
     Dosage: 1.5 MG, UNK
     Route: 048
  6. DABRAFENIB [Suspect]
     Active Substance: DABRAFENIB
     Dosage: 300 MG, QD
     Route: 048
     Dates: start: 20161107, end: 20180314

REACTIONS (19)
  - Eczema [Not Recovered/Not Resolved]
  - Rash [Recovered/Resolved with Sequelae]
  - Oropharyngeal pain [Unknown]
  - Swelling [Recovered/Resolved]
  - Flank pain [Unknown]
  - C-reactive protein increased [Unknown]
  - Chills [Recovered/Resolved]
  - Pain in extremity [Recovered/Resolved]
  - Vomiting [Recovered/Resolved]
  - Insomnia [Unknown]
  - Lung infection [Unknown]
  - Polyarthritis [Unknown]
  - Pyrexia [Unknown]
  - Epilepsy [Recovered/Resolved]
  - Nausea [Not Recovered/Not Resolved]
  - Vomiting [Not Recovered/Not Resolved]
  - Pyrexia [Recovered/Resolved]
  - Cough [Unknown]
  - Dysuria [Unknown]

NARRATIVE: CASE EVENT DATE: 20161215
